FAERS Safety Report 4344371-3 (Version None)
Quarter: 2004Q2

REPORT INFORMATION
  Report Type: 
  Country: None (occurrence: None)
  Receive Date: 20040419
  Receipt Date: 20040407
  Transmission Date: 20050107
  Serious: Yes (Hospitalization)
  Sender: FDA-Public Use
  Company Number: 2004207833JP

PATIENT
  Age: 74 Year
  Sex: Male

DRUGS (8)
  1. ESTRACYT (ESTRAMUSTINE PHOSPHATE) CAPSULE [Suspect]
     Dosage: 560 MG, ORAL
     Route: 048
     Dates: start: 20031203, end: 20040108
  2. LEUPRORELIN ACETATE (LEUPRORELIN ACETATE) [Concomitant]
  3. BICALUTAMIDE [Concomitant]
  4. TICLID [Concomitant]
  5. ETHYL ICOSAPENTATE (ETHYL ICOSAPENTATE) [Concomitant]
  6. AMLODIPINE BESYLATE [Concomitant]
  7. CANDESARTAN CILEXETIL (CANDESARTAN CILEXETIL) [Concomitant]
  8. ISOSORBIDE MONONITRATE [Concomitant]

REACTIONS (5)
  - COUGH [None]
  - DYSPNOEA [None]
  - HEPATIC FUNCTION ABNORMAL [None]
  - INTERSTITIAL LUNG DISEASE [None]
  - OEDEMA PERIPHERAL [None]
